FAERS Safety Report 9700559 (Version 2)
Quarter: 2013Q4

REPORT INFORMATION
  Report Type: Spontaneous
  Country: FR (occurrence: FR)
  Receive Date: 20131121
  Receipt Date: 20131210
  Transmission Date: 20140711
  Serious: Yes (Hospitalization)
  Sender: FDA-Public Use
  Company Number: PHHY2013FR131852

PATIENT
  Sex: Female

DRUGS (2)
  1. GILENYA [Suspect]
     Indication: MULTIPLE SCLEROSIS
     Dosage: 1 DF, QD
     Route: 048
     Dates: start: 20120717
  2. LAROXYL [Suspect]
     Indication: HEADACHE
     Dosage: 25 MG, QD
     Route: 048
     Dates: start: 20121018

REACTIONS (1)
  - Convulsion [Recovered/Resolved]
